FAERS Safety Report 12466889 (Version 1)
Quarter: 2016Q2

REPORT INFORMATION
  Report Type: Spontaneous
  Country: US (occurrence: None)
  Receive Date: 20160614
  Receipt Date: 20160614
  Transmission Date: 20160815
  Serious: No
  Sender: FDA-Public Use
  Company Number: None

PATIENT

DRUGS (2)
  1. AZITHROMYCIN AZITHROMYCIN 500 MG [Suspect]
     Active Substance: AZITHROMYCIN ANHYDROUS
  2. DILTIAZEM HCL  DILTIAZEM [Suspect]
     Active Substance: DILTIAZEM

REACTIONS (7)
  - Drug resistance [None]
  - Unresponsive to stimuli [None]
  - Respiratory failure [None]
  - Drug interaction [None]
  - Hypotension [None]
  - Atrial fibrillation [None]
  - Hypertension [None]
